FAERS Safety Report 24779693 (Version 1)
Quarter: 2024Q4

REPORT INFORMATION
  Report Type: Spontaneous
  Country: BR (occurrence: BR)
  Receive Date: 20241226
  Receipt Date: 20241226
  Transmission Date: 20250114
  Serious: Yes (Other)
  Sender: JOHNSON AND JOHNSON
  Company Number: BR-JNJFOC-20241252341

PATIENT
  Age: 22 Year
  Sex: Male

DRUGS (2)
  1. RISPERDAL [Suspect]
     Active Substance: RISPERIDONE
     Indication: Schizophrenia
     Route: 065
  2. OLANZAPINE [Suspect]
     Active Substance: OLANZAPINE
     Indication: Schizophrenia
     Route: 065

REACTIONS (8)
  - Suicidal ideation [Unknown]
  - Hallucination, auditory [Unknown]
  - Schizophrenia [Unknown]
  - Mania [Unknown]
  - Obesity [Unknown]
  - Akathisia [Unknown]
  - Paranoia [Unknown]
  - Treatment noncompliance [Unknown]
